FAERS Safety Report 10055127 (Version 2)
Quarter: 2014Q3

REPORT INFORMATION
  Report Type: Spontaneous
  Country: US (occurrence: US)
  Receive Date: 20140402
  Receipt Date: 20140919
  Transmission Date: 20150326
  Serious: Yes (Hospitalization, Other)
  Sender: FDA-Public Use
  Company Number: US-SA-2014SA019537

PATIENT
  Age: 58 Year
  Sex: Male

DRUGS (32)
  1. PREDNISONE. [Concomitant]
     Active Substance: PREDNISONE
     Dates: start: 20140813
  2. BETAMETHASONE [Concomitant]
     Active Substance: BETAMETHASONE
     Dates: start: 20140609
  3. CANASA [Concomitant]
     Active Substance: MESALAMINE
     Dates: start: 201405
  4. TERBUTALINE [Concomitant]
     Active Substance: TERBUTALINE
     Dates: start: 20140806
  5. PHENYTOIN SODIUM. [Concomitant]
     Active Substance: PHENYTOIN SODIUM
     Dates: start: 20140619
  6. PHENYTOIN SODIUM. [Concomitant]
     Active Substance: PHENYTOIN SODIUM
     Dates: start: 20140719
  7. HYDROCODONE BIT/APAP [Concomitant]
     Active Substance: ACETAMINOPHEN\HYDROCODONE BITARTRATE
     Dates: start: 20140813
  8. SIMVASTATIN. [Concomitant]
     Active Substance: SIMVASTATIN
     Dates: start: 20140807
  9. DIVALPROEX SODIUM. [Concomitant]
     Active Substance: DIVALPROEX SODIUM
     Dates: start: 20140806
  10. MELOXICAM. [Concomitant]
     Active Substance: MELOXICAM
     Dates: end: 20140211
  11. ALBUTEROL. [Concomitant]
     Active Substance: ALBUTEROL
     Dates: start: 20131011
  12. COPAXONE [Concomitant]
     Active Substance: GLATIRAMER ACETATE
     Dates: start: 20120911
  13. FENOFIBRATE. [Concomitant]
     Active Substance: FENOFIBRATE
  14. SPIRIVA [Concomitant]
     Active Substance: TIOTROPIUM BROMIDE MONOHYDRATE
  15. HYDROCODONE BIT/APAP [Concomitant]
     Active Substance: ACETAMINOPHEN\HYDROCODONE BITARTRATE
     Dates: start: 20140808
  16. TAMSULOSIN [Concomitant]
     Active Substance: TAMSULOSIN
     Dates: start: 20140813
  17. MELOXICAM. [Concomitant]
     Active Substance: MELOXICAM
     Dates: start: 20120830, end: 20130916
  18. MELOXICAM. [Concomitant]
     Active Substance: MELOXICAM
     Dates: start: 20140128
  19. MONTELUKAST [Concomitant]
     Active Substance: MONTELUKAST SODIUM
     Dates: start: 20140806
  20. ASPIRIN. [Concomitant]
     Active Substance: ASPIRIN
     Indication: HEADACHE
  21. AUBAGIO [Suspect]
     Active Substance: TERIFLUNOMIDE
     Indication: MULTIPLE SCLEROSIS
     Route: 065
  22. TRAMADOL [Concomitant]
     Active Substance: TRAMADOL
     Dates: start: 20140806, end: 20140909
  23. SPIRIVA [Concomitant]
     Active Substance: TIOTROPIUM BROMIDE MONOHYDRATE
     Dates: start: 20140525
  24. PROAIR HFA [Concomitant]
     Active Substance: ALBUTEROL SULFATE
     Dates: start: 20140326
  25. LISINOPRIL. [Concomitant]
     Active Substance: LISINOPRIL
     Dates: start: 20140813
  26. GABAPENTIN. [Concomitant]
     Active Substance: GABAPENTIN
     Dates: start: 20140808
  27. ADVAIR DISKUS [Concomitant]
     Active Substance: FLUTICASONE PROPIONATE\SALMETEROL XINAFOATE
     Dates: start: 20140806
  28. IBUPROFEN. [Concomitant]
     Active Substance: IBUPROFEN
     Dates: start: 20140806
  29. MESALAMINE. [Concomitant]
     Active Substance: MESALAMINE
     Dosage: RECTAL SUSPENSION
     Dates: start: 20140624
  30. MONTELUKAST [Concomitant]
     Active Substance: MONTELUKAST SODIUM
     Dates: start: 20120830
  31. GRAMICIDIN/NEOMYCIN SULFATE/NYSTATIN/TRIAMCINOLONE ACETONIDE [Concomitant]
     Dates: start: 20140508
  32. PEPTO-BISMOL [Concomitant]
     Active Substance: BISMUTH SUBSALICYLATE\CALCIUM CARBONATE

REACTIONS (3)
  - Colitis ulcerative [Recovered/Resolved]
  - Diarrhoea [Recovered/Resolved]
  - Weight decreased [Recovered/Resolved]

NARRATIVE: CASE EVENT DATE: 201401
